FAERS Safety Report 10615723 (Version 1)
Quarter: 2014Q4

REPORT INFORMATION
  Report Type: Spontaneous
  Country: US (occurrence: None)
  Receive Date: 20141125
  Receipt Date: 20141125
  Transmission Date: 20150529
  Serious: No
  Sender: FDA-Public Use
  Company Number: None

PATIENT
  Age: 31 Year
  Sex: Female
  Weight: 58.97 kg

DRUGS (4)
  1. KLONOPIN [Suspect]
     Active Substance: CLONAZEPAM
     Dosage: 0.5 MG (1 PILL) 1MG (1 PILL), 0.5MG QAM/1MG QHS ORAL
     Route: 048
     Dates: start: 20141119, end: 20141120
  2. MOTRIN [Concomitant]
     Active Substance: IBUPROFEN
  3. LATUDA [Concomitant]
     Active Substance: LURASIDONE HYDROCHLORIDE
  4. TYLENOL [Concomitant]
     Active Substance: ACETAMINOPHEN

REACTIONS (2)
  - Agitation [None]
  - Paradoxical drug reaction [None]

NARRATIVE: CASE EVENT DATE: 20141120
